FAERS Safety Report 7529168-5 (Version None)
Quarter: 2011Q2

REPORT INFORMATION
  Report Type: 
  Country: None (occurrence: None)
  Receive Date: 20110607
  Receipt Date: 20050411
  Transmission Date: 20111010
  Serious: Yes (Death, Hospitalization)
  Sender: FDA-Public Use
  Company Number: PHHO2005CA04288

PATIENT
  Sex: Female

DRUGS (1)
  1. CLOZARIL [Suspect]
     Indication: SCHIZOPHRENIA
     Dates: start: 19960605

REACTIONS (16)
  - SPEECH DISORDER [None]
  - STAPHYLOCOCCAL INFECTION [None]
  - PYREXIA [None]
  - INFECTION [None]
  - ASPIRATION [None]
  - LOSS OF CONSCIOUSNESS [None]
  - ESCHERICHIA URINARY TRACT INFECTION [None]
  - MYOCARDIAL INFARCTION [None]
  - SINUS TACHYCARDIA [None]
  - EYE MOVEMENT DISORDER [None]
  - SEPSIS [None]
  - ACUTE CORONARY SYNDROME [None]
  - DISORIENTATION [None]
  - ENCEPHALITIS [None]
  - APNOEA [None]
  - ANAEMIA [None]
